FAERS Safety Report 5016990-2 (Version None)
Quarter: 2006Q2

REPORT INFORMATION
  Report Type: 
  Country: None (occurrence: None)
  Receive Date: 20060525
  Receipt Date: 20060518
  Transmission Date: 20061013
  Serious: Yes (Hospitalization)
  Sender: FDA-Public Use
  Company Number: S06-USA-01901-01

PATIENT
  Age: 42 Year
  Sex: Male

DRUGS (6)
  1. LEXAPRO [Suspect]
     Indication: DEPRESSION
     Dosage: 30 MG QD PO
     Route: 048
     Dates: start: 20060203
  2. LEXAPRO [Suspect]
     Indication: DEPRESSION
     Dosage: 20 MG QD PO
     Route: 048
     Dates: start: 20050801, end: 20060202
  3. SEROQUEL [Suspect]
     Dosage: 200 MG QHS
  4. MARIJUANA [Suspect]
     Indication: MIGRAINE
  5. ZONEGRAN [Concomitant]
  6. WELLBUTRIN XL (BUPROPION) [Concomitant]

REACTIONS (18)
  - ALANINE AMINOTRANSFERASE DECREASED [None]
  - ANGER [None]
  - ANXIETY [None]
  - BLOOD UREA NITROGEN/CREATININE RATIO DECREASED [None]
  - DEPRESSION [None]
  - DRUG INTERACTION [None]
  - DRUG SCREEN POSITIVE [None]
  - HEAD INJURY [None]
  - HOMICIDAL IDEATION [None]
  - INSOMNIA [None]
  - MOOD SWINGS [None]
  - NIGHTMARE [None]
  - POST-TRAUMATIC STRESS DISORDER [None]
  - STRESS [None]
  - SUICIDAL BEHAVIOUR [None]
  - SUICIDAL IDEATION [None]
  - TEARFULNESS [None]
  - WEIGHT DECREASED [None]
